FAERS Safety Report 4756637-3 (Version None)
Quarter: 2005Q3

REPORT INFORMATION
  Report Type: 
  Country: None (occurrence: None)
  Receive Date: 20050830
  Receipt Date: 20041119
  Transmission Date: 20060218
  Serious: Yes (Other)
  Sender: FDA-Public Use
  Company Number: US-GLAXOSMITHKLINE-A0534644A

PATIENT
  Age: 17 Year
  Sex: Male

DRUGS (3)
  1. LAMICTAL [Suspect]
     Route: 048
     Dates: start: 20040415
  2. ACCUTANE [Concomitant]
     Dates: start: 20050601, end: 20050701
  3. ADDERALL 30 [Concomitant]
     Dates: end: 20050701

REACTIONS (12)
  - ACCIDENT [None]
  - COGNITIVE DISORDER [None]
  - CONVULSION [None]
  - COORDINATION ABNORMAL [None]
  - DECREASED APPETITE [None]
  - DEPRESSION [None]
  - DISTURBANCE IN ATTENTION [None]
  - DRUG INEFFECTIVE [None]
  - MEMORY IMPAIRMENT [None]
  - NERVOUSNESS [None]
  - POST CONCUSSION SYNDROME [None]
  - SUICIDAL IDEATION [None]
